FAERS Safety Report 9536049 (Version 2)
Quarter: 2013Q4

REPORT INFORMATION
  Report Type: Spontaneous
  Country: US (occurrence: US)
  Receive Date: 20130919
  Receipt Date: 20131004
  Transmission Date: 20140711
  Serious: Yes (Other)
  Sender: FDA-Public Use
  Company Number: US-PFIZER INC-2013265428

PATIENT
  Sex: Female

DRUGS (1)
  1. LATANOPROST [Suspect]
     Dosage: ONE DROP IN EACH EYE DAILY
     Route: 047

REACTIONS (2)
  - Conjunctivitis [Unknown]
  - Eye irritation [Unknown]
